FAERS Safety Report 7711235-4 (Version None)
Quarter: 2011Q3

REPORT INFORMATION
  Report Type: 
  Country: None (occurrence: None)
  Receive Date: 20110826
  Receipt Date: 20110819
  Transmission Date: 20111222
  Serious: Yes (Life-Threatening, Hospitalization, Other)
  Sender: FDA-Public Use
  Company Number: US-AMGEN-USASP2011042741

PATIENT
  Age: 85 Year
  Sex: Male
  Weight: 63.492 kg

DRUGS (1)
  1. PROCRIT [Suspect]
     Indication: PRODUCT USED FOR UNKNOWN INDICATION
     Dosage: UNK

REACTIONS (2)
  - LIP AND/OR ORAL CAVITY CANCER [None]
  - LUNG NEOPLASM MALIGNANT [None]
